FAERS Safety Report 22609055 (Version 1)
Quarter: 2023Q2

REPORT INFORMATION
  Report Type: Report from Study
  Country: CN (occurrence: CN)
  Receive Date: 20230616
  Receipt Date: 20230616
  Transmission Date: 20230721
  Serious: Yes (Other)
  Sender: FDA-Public Use
  Company Number: CN-GILEAD-2023-0632892

PATIENT
  Age: 10 Year
  Sex: Male
  Weight: 28 kg

DRUGS (1)
  1. SOFOSBUVIR\VELPATASVIR [Suspect]
     Active Substance: SOFOSBUVIR\VELPATASVIR
     Indication: Hepatitis C
     Route: 048

REACTIONS (2)
  - Hepatitis C [Not Recovered/Not Resolved]
  - Drug ineffective [Not Recovered/Not Resolved]
